FAERS Safety Report 17335904 (Version 1)
Quarter: 2020Q1

REPORT INFORMATION
  Report Type: Other
  Country: KP (occurrence: KP)
  Receive Date: 20200128
  Receipt Date: 20200128
  Transmission Date: 20200409
  Serious: Yes (Hospitalization, Disabling, Other)
  Sender: FDA-Public Use
  Company Number: KP-DEXPHARM-20200068

PATIENT
  Age: 50 Year
  Sex: Female
  Weight: 62.1 kg

DRUGS (11)
  1. DEXAMETHASONE. [Suspect]
     Active Substance: DEXAMETHASONE
  2. LIDOCAINE 1% [Concomitant]
     Active Substance: LIDOCAINE
  3. TRAMADOL. [Concomitant]
     Active Substance: TRAMADOL
  4. ACETAMINOPHEN FIXED COMBINATION [Concomitant]
  5. OMNIPAQUE [Suspect]
     Active Substance: IOHEXOL
  6. EPHEDRINE. [Concomitant]
     Active Substance: EPHEDRINE
  7. CHLORHEXIDINE [Concomitant]
     Active Substance: CHLORHEXIDINE
  8. MEPIVACAINE 1.5% (BOLUS) [Suspect]
     Active Substance: MEPIVACAINE HYDROCHLORIDE
  9. HYALURONIDASE [Suspect]
     Active Substance: HYALURONIDASE
  10. LYRICA [Concomitant]
     Active Substance: PREGABALIN
  11. METHYLPREDNISOLONE. [Concomitant]
     Active Substance: METHYLPREDNISOLONE

REACTIONS (2)
  - Quadriparesis [Recovering/Resolving]
  - Spinal cord injury [Recovering/Resolving]
